FAERS Safety Report 24126162 (Version 1)
Quarter: 2024Q3

REPORT INFORMATION
  Report Type: Spontaneous
  Country: US (occurrence: None)
  Receive Date: 20240721
  Receipt Date: 20240721
  Transmission Date: 20241016
  Serious: Yes (Disabling, Other)
  Sender: Public
  Company Number: None

PATIENT
  Age: 36 Year
  Sex: Female
  Weight: 89.1 kg

DRUGS (11)
  1. ZEPBOUND [Suspect]
     Active Substance: TIRZEPATIDE
     Indication: Weight decreased
     Dosage: OTHER QUANTITY : 0.5 ML;?OTHER FREQUENCY : WEEKLY;?
     Route: 058
     Dates: start: 20240502, end: 20240615
  2. ADDERALL [Concomitant]
     Active Substance: AMPHETAMINE ASPARTATE\AMPHETAMINE SULFATE\DEXTROAMPHETAMINE SACCHARATE\DEXTROAMPHETAMINE SULFATE
  3. ALLEGRA [Concomitant]
     Active Substance: FEXOFENADINE HYDROCHLORIDE
  4. BUSPAR [Concomitant]
  5. Bupropion XL [Concomitant]
  6. PREVACID [Concomitant]
  7. XANAX [Concomitant]
     Active Substance: ALPRAZOLAM
  8. LOESTRIN [Concomitant]
  9. Florajen Women^s [Concomitant]
  10. Hair skin and nails vitamins [Concomitant]
  11. MAGNESIUM OXIDE [Concomitant]

REACTIONS (5)
  - Abdominal pain upper [None]
  - Quality of life decreased [None]
  - Vomiting [None]
  - Constipation [None]
  - Diarrhoea [None]

NARRATIVE: CASE EVENT DATE: 20240706
